FAERS Safety Report 9723426 (Version 1)
Quarter: 2013Q4

REPORT INFORMATION
  Report Type: Spontaneous
  Country: EC (occurrence: EC)
  Receive Date: 20131202
  Receipt Date: 20131202
  Transmission Date: 20140711
  Serious: Yes (Death)
  Sender: FDA-Public Use
  Company Number: EC-PFIZER INC-2013342056

PATIENT
  Age: 76 Year
  Sex: Female

DRUGS (1)
  1. ZOLOFT [Suspect]
     Indication: MAJOR DEPRESSION
     Dosage: 50 MG, 2X/DAY
     Route: 048
     Dates: start: 2006

REACTIONS (1)
  - Cerebrovascular accident [Fatal]
